FAERS Safety Report 10741782 (Version 2)
Quarter: 2015Q1

REPORT INFORMATION
  Report Type: Spontaneous
  Country: JP (occurrence: JP)
  Receive Date: 20150127
  Receipt Date: 20150227
  Transmission Date: 20150721
  Serious: Yes (Life-Threatening, Hospitalization, Other)
  Sender: FDA-Public Use
  Company Number: JP-ASTELLAS-2014JP021296AA

PATIENT
  Age: 7 Month
  Sex: Male
  Weight: 6 kg

DRUGS (8)
  1. PREDONINE [Suspect]
     Active Substance: PREDNISOLONE\PREDNISOLONE ACETATE\PREDNISOLONE SODIUM SUCCINATE
     Indication: PROPHYLAXIS AGAINST GRAFT VERSUS HOST DISEASE
  2. FOSCAVIR [Suspect]
     Active Substance: FOSCARNET SODIUM
     Indication: INFECTION PROPHYLAXIS
     Route: 042
     Dates: start: 20110906, end: 20111101
  3. PROGRAF [Suspect]
     Active Substance: TACROLIMUS\TACROLIMUS ANHYDROUS
     Indication: PROPHYLAXIS AGAINST GRAFT VERSUS HOST DISEASE
     Dosage: 0.04 MG, CONTINUOUS
     Route: 041
     Dates: start: 20110922, end: 20111102
  4. PROGRAF [Suspect]
     Active Substance: TACROLIMUS\TACROLIMUS ANHYDROUS
     Indication: STEM CELL TRANSPLANT
     Dosage: 0.12 MG, CONTINUOUS
     Route: 041
     Dates: start: 20110828, end: 20110921
  5. FRAGMIN [Suspect]
     Active Substance: DALTEPARIN SODIUM
     Indication: PROPHYLAXIS
     Route: 041
     Dates: start: 20110803, end: 20120112
  6. REMODULIN [Suspect]
     Active Substance: TREPROSTINIL
     Indication: THROMBOTIC MICROANGIOPATHY
     Route: 042
     Dates: start: 20110916, end: 20111002
  7. NITOPRO [Concomitant]
     Indication: HYPERTENSION
     Route: 041
     Dates: start: 20110831, end: 20111014
  8. PREDONINE [Suspect]
     Active Substance: PREDNISOLONE\PREDNISOLONE ACETATE\PREDNISOLONE SODIUM SUCCINATE
     Indication: ANTIVIRAL TREATMENT
     Route: 042
     Dates: start: 20110831, end: 20111026

REACTIONS (2)
  - Melaena [Recovered/Resolved]
  - Thrombotic microangiopathy [Recovered/Resolved]

NARRATIVE: CASE EVENT DATE: 20110916
